FAERS Safety Report 13270997 (Version 2)
Quarter: 2017Q2

REPORT INFORMATION
  Report Type: Spontaneous
  Country: US (occurrence: US)
  Receive Date: 20170225
  Receipt Date: 20170420
  Transmission Date: 20170830
  Serious: Yes (Other)
  Sender: FDA-Public Use
  Company Number: US-BAUSCH-BL-2017-003906

PATIENT
  Age: 38 Year
  Sex: Female

DRUGS (1)
  1. ARESTIN [Suspect]
     Active Substance: MINOCYCLINE HYDROCHLORIDE
     Indication: PRODUCT USED FOR UNKNOWN INDICATION
     Dosage: GINGIVAL USE
     Route: 065
     Dates: start: 20161213, end: 20161213

REACTIONS (8)
  - Condition aggravated [Recovering/Resolving]
  - Urticaria [Recovering/Resolving]
  - Weight increased [Unknown]
  - Swelling face [Recovering/Resolving]
  - Hypotension [Unknown]
  - Throat tightness [Unknown]
  - Oral herpes [Unknown]
  - Mouth swelling [Recovering/Resolving]

NARRATIVE: CASE EVENT DATE: 20161215
